FAERS Safety Report 9138035 (Version 3)
Quarter: 2013Q2

REPORT INFORMATION
  Report Type: Spontaneous
  Country: US (occurrence: US)
  Receive Date: 20130304
  Receipt Date: 20130503
  Transmission Date: 20140414
  Serious: Yes (Other)
  Sender: FDA-Public Use
  Company Number: US-PFIZER INC-2013074604

PATIENT
  Age: 74 Year
  Sex: Female

DRUGS (1)
  1. LYRICA [Suspect]
     Dosage: 100 MG, 2X/DAY

REACTIONS (5)
  - Withdrawal syndrome [Unknown]
  - Gait disturbance [Unknown]
  - Pain [Unknown]
  - Abasia [Unknown]
  - Nervousness [Unknown]
